FAERS Safety Report 9849640 (Version 1)
Quarter: 2013Q4

REPORT INFORMATION
  Report Type: Spontaneous
  Country: US (occurrence: None)
  Receive Date: 20131226
  Receipt Date: 20131226
  Transmission Date: 20140711
  Serious: Yes (Hospitalization, Disabling)
  Sender: FDA-Public Use
  Company Number: PHEH2013US011072

PATIENT
  Age: 74 Year
  Sex: Female
  Weight: 64 kg

DRUGS (5)
  1. RECLAST (ZOLEDRONATE) SOLUTION FOR INJECTION [Suspect]
     Indication: OSTEOPOROSIS
     Route: 042
     Dates: start: 20130513
  2. SYNTHROID (LEVOTHYROXINE SODIUM) [Concomitant]
  3. VITAMIN D3 (COLECALCIFEROL) [Concomitant]
  4. VIACTIV/CAN/ (CALCIUM, COLECALCIFEROL) [Concomitant]
  5. VITAMIN D (ERGOCALCIFEROL) [Concomitant]

REACTIONS (11)
  - Dehydration [None]
  - Nausea [None]
  - Myalgia [None]
  - Arthralgia [None]
  - Pyrexia [None]
  - Red blood cell sedimentation rate increased [None]
  - Vomiting [None]
  - Asthenia [None]
  - Joint swelling [None]
  - Pain [None]
  - Fatigue [None]
